FAERS Safety Report 7374481-8 (Version None)
Quarter: 2011Q1

REPORT INFORMATION
  Report Type: 
  Country: None (occurrence: None)
  Receive Date: 20110325
  Receipt Date: 20110223
  Transmission Date: 20110831
  Serious: No
  Sender: FDA-Public Use
  Company Number: US-MYLANLABS-2011S1000637

PATIENT
  Age: 57 Year
  Sex: Female

DRUGS (35)
  1. FENTANYL-100 [Suspect]
     Indication: OSTEOPOROSIS
     Dosage: CHANGED Q72H
     Route: 062
     Dates: start: 20101212, end: 20101201
  2. FENTANYL-100 [Suspect]
     Dosage: CHANGED Q72H
     Route: 062
     Dates: start: 20101201, end: 20101230
  3. ANALGESIC /06426301/ [Concomitant]
  4. OXYCODONE HCL EXTENDED-RELEASE [Concomitant]
     Indication: BACK PAIN
     Dates: start: 20101212, end: 20110105
  5. ROBAXIN [Concomitant]
     Indication: MUSCLE SPASMS
     Dosage: PRN
  6. IMITREX [Concomitant]
     Indication: MIGRAINE
  7. NYSTATIN [Concomitant]
     Indication: CANDIDIASIS
     Route: 048
  8. FENTANYL-100 [Suspect]
     Indication: PAIN
     Dosage: CHANGED Q72H
     Route: 062
     Dates: start: 20101212, end: 20101201
  9. OXYCODONE [Concomitant]
  10. ACETAMINOPHEN [Concomitant]
  11. FOLIC ACID [Concomitant]
  12. PEPCID AC [Concomitant]
     Indication: GASTROOESOPHAGEAL REFLUX DISEASE
  13. BUMEX [Concomitant]
  14. FENTANYL-100 [Suspect]
     Indication: RHEUMATOID ARTHRITIS
     Dosage: CHANGED Q72H
     Route: 062
     Dates: start: 20101212, end: 20101201
  15. FENTANYL-100 [Suspect]
     Dosage: CHANGED Q72H
     Route: 062
     Dates: start: 20101201, end: 20101230
  16. POTASSIUM CHLORIDE EXTENDED RELEASE TABLETS [Concomitant]
  17. PREDNISONE [Concomitant]
     Indication: SYSTEMIC LUPUS ERYTHEMATOSUS
  18. PREMARIN [Concomitant]
     Indication: OSTEOPOROSIS
  19. FENTANYL-100 [Suspect]
     Dosage: CHANGED Q72H
     Route: 062
     Dates: start: 20101201, end: 20101230
  20. PROPRANOLOL [Concomitant]
     Indication: TREMOR
  21. ASPIRIN [Concomitant]
  22. FENTANYL-100 [Suspect]
     Dosage: CHANGED Q72H
     Route: 062
     Dates: start: 20101201, end: 20101230
  23. VITAMIN D [Concomitant]
  24. IRON [Concomitant]
     Indication: ANAEMIA
  25. COMPAZINE [Concomitant]
  26. NYSTATIN [Concomitant]
     Route: 061
  27. FENTANYL-100 [Suspect]
     Indication: INTERVERTEBRAL DISC DEGENERATION
     Dosage: CHANGED Q72H
     Route: 062
     Dates: start: 20101212, end: 20101201
  28. VIACTIV /00751501/ [Concomitant]
  29. FLUCONAZOLE [Concomitant]
     Indication: FUNGAL INFECTION
  30. IBUPROFEN [Concomitant]
  31. DIAZEPAM [Concomitant]
  32. ASCORBIC ACID [Concomitant]
  33. FLUCONAZOLE [Concomitant]
     Indication: CANDIDIASIS
  34. TYLENOL PM [Concomitant]
  35. CAPSAICIN [Concomitant]

REACTIONS (5)
  - DRUG INEFFECTIVE [None]
  - TREMOR [None]
  - DRUG WITHDRAWAL SYNDROME [None]
  - PAIN [None]
  - DIARRHOEA [None]
